FAERS Safety Report 15103222 (Version 2)
Quarter: 2018Q3

REPORT INFORMATION
  Report Type: Other
  Country: ES (occurrence: ES)
  Receive Date: 20180703
  Receipt Date: 20180713
  Transmission Date: 20181010
  Serious: Yes (Other)
  Sender: FDA-Public Use
  Company Number: ES-APPCO PHARMA LLC-2051246

PATIENT
  Age: 30 Year
  Sex: Male

DRUGS (2)
  1. BUDESONIDE. [Suspect]
     Active Substance: BUDESONIDE
     Indication: PRODUCT USED FOR UNKNOWN INDICATION
     Route: 050
  2. TERBUTALINE [Concomitant]
     Active Substance: TERBUTALINE
     Route: 065

REACTIONS (2)
  - Eosinophilic oesophagitis [Not Recovered/Not Resolved]
  - Actinomycosis [Recovered/Resolved]
